FAERS Safety Report 8588536-3 (Version None)
Quarter: 2012Q3

REPORT INFORMATION
  Report Type: 
  Country: None (occurrence: None)
  Receive Date: 20120813
  Receipt Date: 20120806
  Transmission Date: 20120928
  Serious: Yes (Other)
  Sender: FDA-Public Use
  Company Number: US-JNJFOC-20120803169

PATIENT
  Sex: Female
  Weight: 59.88 kg

DRUGS (1)
  1. SIMPONI [Suspect]
     Indication: RHEUMATOID ARTHRITIS
     Route: 058
     Dates: start: 20110101

REACTIONS (11)
  - DRUG EFFECT DECREASED [None]
  - ARTHRALGIA [None]
  - INFLAMMATION [None]
  - DEAFNESS [None]
  - FEELING COLD [None]
  - PULMONARY TUBERCULOSIS [None]
  - JOINT STIFFNESS [None]
  - INCORRECT STORAGE OF DRUG [None]
  - PAIN [None]
  - DIZZINESS [None]
  - HEART RATE INCREASED [None]
